FAERS Safety Report 4663949-0 (Version None)
Quarter: 2005Q2

REPORT INFORMATION
  Report Type: 
  Country: None (occurrence: None)
  Receive Date: 20050502
  Receipt Date: 20050329
  Transmission Date: 20051028
  Serious: Yes (Hospitalization)
  Sender: FDA-Public Use
  Company Number: 141702USA

PATIENT
  Age: 53 Year
  Sex: Female

DRUGS (3)
  1. TIZANIDINE HCL [Suspect]
     Indication: FIBROMYALGIA
     Dates: start: 20030401
  2. PRILOSEC [Concomitant]
  3. MEVACOR [Concomitant]

REACTIONS (2)
  - DIZZINESS [None]
  - FALL [None]
